FAERS Safety Report 4429495-4 (Version None)
Quarter: 2004Q3

REPORT INFORMATION
  Report Type: 
  Country: None (occurrence: None)
  Receive Date: 20040818
  Receipt Date: 20040818
  Transmission Date: 20050211
  Serious: Yes (Hospitalization)
  Sender: FDA-Public Use
  Company Number: None

PATIENT
  Age: 60 Year
  Sex: Male
  Weight: 72.5755 kg

DRUGS (13)
  1. GABAPENTIN [Suspect]
     Indication: NEUROPATHY
     Dosage: 300 MG TID PO
     Route: 048
  2. GABAPENTIN [Suspect]
     Indication: PAIN IN EXTREMITY
     Dosage: 300 MG TID PO
     Route: 048
  3. OXYCONTIN [Concomitant]
  4. OXYCODONE HCL [Concomitant]
  5. LIPITOR [Concomitant]
  6. LEVAQUIN [Concomitant]
  7. ZANTAC [Concomitant]
  8. ADVIL [Concomitant]
  9. XELODA [Concomitant]
  10. REGLAN [Concomitant]
  11. FLOMAX [Concomitant]
  12. LOPROX [Concomitant]
  13. ARANESP [Concomitant]

REACTIONS (5)
  - ASTHENIA [None]
  - ATAXIA [None]
  - FALL [None]
  - LUMBAR RADICULOPATHY [None]
  - URINARY TRACT INFECTION [None]
